FAERS Safety Report 8341352-X (Version None)
Quarter: 2012Q2

REPORT INFORMATION
  Report Type: 
  Country: None (occurrence: None)
  Receive Date: 20120507
  Receipt Date: 20120426
  Transmission Date: 20120825
  Serious: Yes (Other)
  Sender: FDA-Public Use
  Company Number: US-ASTRAZENECA-2005UW08617

PATIENT
  Age: 63 Year
  Sex: Female
  Weight: 72.6 kg

DRUGS (9)
  1. LENTIS [Concomitant]
  2. LISINOPRIL [Concomitant]
  3. ATENOLOL [Concomitant]
  4. A LOT OF MEDICATION [Concomitant]
  5. CRESTOR [Suspect]
     Indication: BLOOD CHOLESTEROL INCREASED
     Route: 048
     Dates: start: 20050401, end: 20050501
  6. CRESTOR [Suspect]
     Route: 048
  7. NEURONTIN [Concomitant]
  8. AMARYL [Concomitant]
  9. GLUCOPHAGE [Concomitant]

REACTIONS (8)
  - SLEEP DISORDER [None]
  - VISUAL IMPAIRMENT [None]
  - EYE HAEMORRHAGE [None]
  - CHROMATURIA [None]
  - DIABETES MELLITUS [None]
  - PRURITUS [None]
  - RASH [None]
  - FUNGAL SKIN INFECTION [None]
